FAERS Safety Report 6773617-7 (Version None)
Quarter: 2010Q2

REPORT INFORMATION
  Report Type: 
  Country: None (occurrence: None)
  Receive Date: 20100614
  Receipt Date: 20100528
  Transmission Date: 20101027
  Serious: Yes (Death, Other)
  Sender: FDA-Public Use
  Company Number: 056-CCAZA-10052609

PATIENT

DRUGS (3)
  1. AZACITIDINE [Suspect]
     Indication: ACUTE MYELOID LEUKAEMIA
     Dosage: SEE IMAGE
     Route: 048
  2. AZACITIDINE [Suspect]
     Indication: MYELODYSPLASTIC SYNDROME
     Dosage: SEE IMAGE
     Route: 048
  3. AZACITIDINE [Suspect]
     Indication: MYELODYSPLASTIC SYNDROME TRANSFORMATION
     Dosage: SEE IMAGE
     Route: 048

REACTIONS (5)
  - DRUG INTOLERANCE [None]
  - FEBRILE NEUTROPENIA [None]
  - GASTROINTESTINAL DISORDER [None]
  - INFECTION [None]
  - PANCYTOPENIA [None]
